FAERS Safety Report 5365421-1 (Version None)
Quarter: 2007Q2

REPORT INFORMATION
  Report Type: 
  Country: None (occurrence: None)
  Receive Date: 20070621
  Receipt Date: 20070615
  Transmission Date: 20071010
  Serious: Yes (Hospitalization, Other)
  Sender: FDA-Public Use
  Company Number: US-ELI_LILLY_AND_COMPANY-US200706003605

PATIENT
  Age: 64 Year
  Sex: Male

DRUGS (3)
  1. ZYPREXA ZYDIS [Suspect]
     Indication: SCHIZOPHRENIA
     Dosage: 10 MG, EACH MORNING
     Dates: start: 20070401
  2. ZYPREXA ZYDIS [Suspect]
     Dosage: 20 MG, EACH EVENING
     Dates: start: 20070401
  3. SEROQUEL [Concomitant]

REACTIONS (3)
  - BLOOD GLUCOSE INCREASED [None]
  - INFECTION [None]
  - PRESCRIBED OVERDOSE [None]
